FAERS Safety Report 5441824-1 (Version None)
Quarter: 2007Q3

REPORT INFORMATION
  Report Type: 
  Country: None (occurrence: None)
  Receive Date: 20070830
  Receipt Date: 20070830
  Transmission Date: 20080115
  Serious: Yes (Hospitalization)
  Sender: FDA-Public Use
  Company Number: None

PATIENT
  Age: 35 Year
  Sex: Female

DRUGS (2)
  1. OXALIPLATIN [Suspect]
     Indication: GASTRIC CANCER
     Dosage: 211MG EVERY 3 WEEKS IV BOLUS
     Route: 040
     Dates: start: 20070827, end: 20070827
  2. CAPCETABINE [Concomitant]

REACTIONS (9)
  - APHONIA [None]
  - COORDINATION ABNORMAL [None]
  - DYSPNOEA [None]
  - ILL-DEFINED DISORDER [None]
  - INFUSION RELATED REACTION [None]
  - LETHARGY [None]
  - OXYGEN SATURATION DECREASED [None]
  - PARAESTHESIA [None]
  - SENSATION OF FOREIGN BODY [None]
